FAERS Safety Report 20860702 (Version 1)
Quarter: 2022Q2

REPORT INFORMATION
  Report Type: Spontaneous
  Country: US (occurrence: None)
  Receive Date: 20220522
  Receipt Date: 20220522
  Transmission Date: 20220720
  Serious: No
  Sender: FDA-Public Use
  Company Number: None

PATIENT
  Age: 37 Year
  Sex: Female
  Weight: 108 kg

DRUGS (1)
  1. PAXLOVID [Suspect]
     Active Substance: NIRMATRELVIR\RITONAVIR
     Indication: COVID-19
     Dosage: FREQUENCY : TWICE A DAY;?
     Route: 048
     Dates: start: 20220426, end: 20220430

REACTIONS (8)
  - Rebound effect [None]
  - Symptom recurrence [None]
  - Aphonia [None]
  - Rhinorrhoea [None]
  - Productive cough [None]
  - Headache [None]
  - Oropharyngeal pain [None]
  - Sinusitis [None]

NARRATIVE: CASE EVENT DATE: 20220502
